FAERS Safety Report 9644694 (Version 2)
Quarter: 2013Q4

REPORT INFORMATION
  Report Type: Spontaneous
  Country: US (occurrence: US)
  Receive Date: 20131025
  Receipt Date: 20131202
  Transmission Date: 20140711
  Serious: Yes (Death)
  Sender: FDA-Public Use
  Company Number: US-CELGENEUS-163-21660-13104190

PATIENT
  Age: 66 Year
  Sex: Female

DRUGS (1)
  1. ABRAXANE [Suspect]
     Indication: PANCREATIC CARCINOMA
     Route: 065

REACTIONS (2)
  - Pancreatic carcinoma metastatic [Fatal]
  - Sepsis [Fatal]
